FAERS Safety Report 11805198 (Version 1)
Quarter: 2015Q4

REPORT INFORMATION
  Report Type: Spontaneous
  Country: NO (occurrence: NO)
  Receive Date: 20151206
  Receipt Date: 20151206
  Transmission Date: 20160305
  Serious: Yes (Hospitalization, Congenital Anomaly, Other)
  Sender: FDA-Public Use
  Company Number: NO-MYLANLABS-2015M1043185

PATIENT

DRUGS (3)
  1. PARACETAMOL [Concomitant]
     Active Substance: ACETAMINOPHEN
     Dosage: THREE TIMES DAILY FOR 2 DAYS
     Route: 064
  2. MORPHINE [Concomitant]
     Active Substance: MORPHINE
     Dosage: SEVERAL DOSES
     Route: 064
  3. DICLOFENAC [Suspect]
     Active Substance: DICLOFENAC
     Indication: ABDOMINAL PAIN
     Dosage: TOTAL OF 6 DOSES
     Route: 064

REACTIONS (6)
  - Ascites [Recovered/Resolved]
  - Foetal exposure during pregnancy [Recovered/Resolved]
  - Generalised oedema [Recovered/Resolved]
  - Ductus arteriosus stenosis foetal [Recovered/Resolved]
  - Pulmonary hypertension [Recovered/Resolved]
  - Right ventricular failure [Recovered/Resolved]
